FAERS Safety Report 20169086 (Version 2)
Quarter: 2022Q4

REPORT INFORMATION
  Report Type: Spontaneous
  Country: US (occurrence: US)
  Receive Date: 20211210
  Receipt Date: 20221020
  Transmission Date: 20230113
  Serious: Yes (Other)
  Sender: FDA-Public Use
  Company Number: US-BAYER-2021A265541

PATIENT
  Age: 32 Year
  Sex: Female

DRUGS (1)
  1. MIRENA [Suspect]
     Active Substance: LEVONORGESTREL
     Indication: Contraception
     Dosage: 20?G/DAY
     Route: 015
     Dates: start: 20180501, end: 20211208

REACTIONS (6)
  - Pregnancy with contraceptive device [None]
  - Caesarean section [None]
  - Drug ineffective [None]
  - Subchorionic haemorrhage [None]
  - Uterine leiomyoma [None]
  - Placental disorder [None]

NARRATIVE: CASE EVENT DATE: 20211208
